FAERS Safety Report 17722611 (Version 2)
Quarter: 2020Q3

REPORT INFORMATION
  Report Type: Spontaneous
  Country: US (occurrence: US)
  Receive Date: 20200429
  Receipt Date: 20200728
  Transmission Date: 20201102
  Serious: Yes (Other)
  Sender: FDA-Public Use
  Company Number: US-ABBVIE-20K-163-3382648-00

PATIENT
  Age: 54 Year
  Sex: Female

DRUGS (1)
  1. VENCLEXTA [Suspect]
     Active Substance: VENETOCLAX
     Indication: PLASMA CELL MYELOMA
     Dosage: TAKE 4 TABLET(S) BY MOUTH DAILY
     Route: 048

REACTIONS (18)
  - Fall [Unknown]
  - Bone pain [Unknown]
  - Dyspepsia [Unknown]
  - Fatigue [Unknown]
  - Paraesthesia [Unknown]
  - Insomnia [Unknown]
  - Off label use [Unknown]
  - Upper limb fracture [Unknown]
  - Swelling face [Unknown]
  - Arthralgia [Unknown]
  - Pain in extremity [Unknown]
  - Increased tendency to bruise [Unknown]
  - Dizziness [Unknown]
  - Diarrhoea [Unknown]
  - Hypoaesthesia [Unknown]
  - Back pain [Unknown]
  - Injury [Unknown]
  - Decreased appetite [Unknown]

NARRATIVE: CASE EVENT DATE: 201911
